FAERS Safety Report 14798652 (Version 1)
Quarter: 2018Q2

REPORT INFORMATION
  Report Type: Spontaneous
  Country: US (occurrence: US)
  Receive Date: 20180416
  Receipt Date: 20180416
  Transmission Date: 20180711
  Serious: No
  Sender: FDA-Public Use
  Company Number: None

PATIENT
  Age: 62 Year
  Sex: Female

DRUGS (1)
  1. MONISTAT 3 [Suspect]
     Active Substance: MICONAZOLE NITRATE
     Indication: CANDIDA INFECTION
     Dosage: QUANTITY:1 TUBE;?
     Route: 067
     Dates: start: 20180415, end: 20180415

REACTIONS (5)
  - Burning sensation [None]
  - Pruritus [None]
  - Discomfort [None]
  - Product quality issue [None]
  - Nonspecific reaction [None]

NARRATIVE: CASE EVENT DATE: 20180415
